FAERS Safety Report 25528201 (Version 1)
Quarter: 2025Q3

REPORT INFORMATION
  Report Type: Spontaneous
  Country: EU (occurrence: EU)
  Receive Date: 20250708
  Receipt Date: 20250708
  Transmission Date: 20251020
  Serious: Yes (Other)
  Sender: RANBAXY
  Company Number: EU-SUN PHARMACEUTICAL INDUSTRIES LTD-2025RR-515362

PATIENT
  Age: 58 Year
  Sex: Male

DRUGS (2)
  1. GEMCITABINE [Suspect]
     Active Substance: GEMCITABINE
     Indication: Adenocarcinoma pancreas
     Route: 040
     Dates: start: 20240729
  2. ABRAXANE [Suspect]
     Active Substance: PACLITAXEL
     Indication: Adenocarcinoma pancreas
     Route: 040
     Dates: start: 20240729

REACTIONS (2)
  - Hypokalaemia [Recovered/Resolved]
  - Diarrhoea [Not Recovered/Not Resolved]

NARRATIVE: CASE EVENT DATE: 20240901
